FAERS Safety Report 23152033 (Version 3)
Quarter: 2023Q4

REPORT INFORMATION
  Report Type: Report from Study
  Country: TR (occurrence: TR)
  Receive Date: 20231107
  Receipt Date: 20231206
  Transmission Date: 20240110
  Serious: Yes (Death, Other)
  Sender: FDA-Public Use
  Company Number: TR-ABBVIE-5480062

PATIENT
  Age: 63 Year
  Sex: Female

DRUGS (5)
  1. CARBIDOPA\LEVODOPA [Suspect]
     Active Substance: CARBIDOPA\LEVODOPA
     Indication: Parkinson^s disease
     Dosage: MORNING DOSE (ML): 5.00 CONTINUOUS DOSE (ML): 5.00 EXTRA DOSE (ML): 1.50
     Route: 050
     Dates: start: 20231011, end: 20231102
  2. CARBIDOPA\LEVODOPA [Suspect]
     Active Substance: CARBIDOPA\LEVODOPA
     Dosage: MORNING DOSE (ML): 5.00 CONTINUOUS DOSE (ML): 5.00 EXTRA DOSE (ML): 1.50
     Route: 050
     Dates: start: 20231105
  3. INSULIN NOS [Concomitant]
     Active Substance: INSULIN NOS
     Indication: Diabetes mellitus
     Dosage: INSULIN PEN
  4. HYDROCHLOROTHIAZIDE\OLMESARTAN MEDOXOMIL [Concomitant]
     Active Substance: HYDROCHLOROTHIAZIDE\OLMESARTAN MEDOXOMIL
     Indication: Hypertension
     Dosage: 20/12.5
     Route: 048
  5. OLANZAPINE [Concomitant]
     Active Substance: OLANZAPINE
     Indication: Parkinson^s disease
     Dosage: 10 MILLIGRAM TABLET,?FORM STRENGTH: 5 MILLIGRAM,?FREQUENCY: 1 INTO 2
     Route: 048

REACTIONS (7)
  - Cardiac arrest [Fatal]
  - Urinary tract infection [Recovered/Resolved]
  - Embedded device [Recovered/Resolved]
  - Aspiration [Recovered/Resolved]
  - Stoma site infection [Recovered/Resolved]
  - Embedded device [Recovered/Resolved]
  - Incorrect route of product administration [Not Recovered/Not Resolved]

NARRATIVE: CASE EVENT DATE: 20231023
